FAERS Safety Report 16131960 (Version 1)
Quarter: 2019Q1

REPORT INFORMATION
  Report Type: Other
  Country: FR (occurrence: FR)
  Receive Date: 20190329
  Receipt Date: 20190329
  Transmission Date: 20190418
  Serious: Yes (Life-Threatening, Hospitalization)
  Sender: FDA-Public Use
  Company Number: FR-DENTSPLY-2019SCDP000187

PATIENT
  Age: 10 Year
  Sex: Female
  Weight: 22 kg

DRUGS (4)
  1. SUFENTANIL CITRATE. [Suspect]
     Active Substance: SUFENTANIL CITRATE
     Indication: INDUCTION OF ANAESTHESIA
     Dosage: 4 MICROGRAM,TOTAL
     Route: 042
     Dates: start: 20171208, end: 20171208
  2. CELOCURINE                         /00057702/ [Suspect]
     Active Substance: SUCCINYLCHOLINE CHLORIDE
     Indication: INDUCTION OF ANAESTHESIA
     Dosage: 40 MG, TOTAL
     Route: 042
     Dates: start: 20171208, end: 20171208
  3. PROPOFOL. [Suspect]
     Active Substance: PROPOFOL
     Indication: INDUCTION OF ANAESTHESIA
     Dosage: 100 MG,TOTAL
     Route: 042
     Dates: start: 20171208, end: 20171208
  4. XYLOCAINE WITH ADRENALINE (EPINEPHRINE) [Suspect]
     Active Substance: EPINEPHRINE BITARTRATE\LIDOCAINE HYDROCHLORIDE
     Indication: INDUCTION OF ANAESTHESIA
     Dosage: 30 MG, TOTAL
     Route: 042
     Dates: start: 20171208, end: 20171208

REACTIONS (5)
  - Hypotension [Recovered/Resolved]
  - Rash generalised [Recovered/Resolved]
  - Bronchospasm [Recovered/Resolved]
  - Oxygen saturation decreased [Recovered/Resolved]
  - Anaphylactic shock [Recovered/Resolved]

NARRATIVE: CASE EVENT DATE: 20171208
